FAERS Safety Report 5021645-4 (Version None)
Quarter: 2006Q2

REPORT INFORMATION
  Report Type: 
  Country: None (occurrence: None)
  Receive Date: 20060605
  Receipt Date: 20060524
  Transmission Date: 20061013
  Serious: Yes (Other)
  Sender: FDA-Public Use
  Company Number: B0425874A

PATIENT
  Age: 20 Year
  Sex: Female

DRUGS (2)
  1. LAMICTAL [Suspect]
     Indication: CONVULSION
  2. PARACETAMOL [Concomitant]

REACTIONS (9)
  - ALVEOLITIS ALLERGIC [None]
  - CHEST PAIN [None]
  - EOSINOPHILIA [None]
  - HEPATITIS [None]
  - HYPERSENSITIVITY [None]
  - LIVER TENDERNESS [None]
  - LYMPHADENOPATHY [None]
  - RESPIRATORY DISTRESS [None]
  - TACHYCARDIA [None]
